FAERS Safety Report 4814431-9 (Version None)
Quarter: 2005Q4

REPORT INFORMATION
  Report Type: 
  Country: None (occurrence: None)
  Receive Date: 20051028
  Receipt Date: 20050824
  Transmission Date: 20060501
  Serious: No
  Sender: FDA-Public Use
  Company Number: US-GLAXOSMITHKLINE-A0571672A

PATIENT
  Age: 87 Year
  Sex: Female

DRUGS (10)
  1. ADVAIR DISKUS 100/50 [Suspect]
     Indication: ASTHMA
     Dosage: 1PUFF TWICE PER DAY
     Route: 055
     Dates: start: 20050601
  2. NEBULIZER [Concomitant]
  3. NAMENDA [Concomitant]
     Route: 065
  4. SINGULAIR [Concomitant]
  5. ZOLOFT [Concomitant]
  6. CARTIA XT [Concomitant]
  7. WARFARIN SODIUM [Concomitant]
  8. PANATOL [Concomitant]
     Route: 047
  9. IPRATROPIUM BROMIDE [Concomitant]
     Route: 065
  10. ALBUTEROL [Concomitant]

REACTIONS (3)
  - COUGH [None]
  - DYSPNOEA [None]
  - PHARMACEUTICAL PRODUCT COMPLAINT [None]
